FAERS Safety Report 10620317 (Version 1)
Quarter: 2014Q4

REPORT INFORMATION
  Report Type: Spontaneous
  Country: CN (occurrence: CN)
  Receive Date: 20141202
  Receipt Date: 20141202
  Transmission Date: 20150529
  Serious: Yes (Other)
  Sender: FDA-Public Use
  Company Number: CN-BAYER-2014-173633

PATIENT
  Age: 44 Year
  Sex: Male

DRUGS (3)
  1. HYDROXYUREA. [Concomitant]
     Active Substance: HYDROXYUREA
     Indication: POLYCYTHAEMIA VERA
  2. ACETYLSALICYLIC ACID({=100 MG) [Suspect]
     Active Substance: ASPIRIN
     Indication: POLYCYTHAEMIA VERA
  3. INTERFERON NOS [Concomitant]
     Active Substance: INTERFERON
     Indication: POLYCYTHAEMIA VERA

REACTIONS (8)
  - Upper gastrointestinal haemorrhage [None]
  - Product use issue [None]
  - Splenic infarction [None]
  - Portal hypertension [None]
  - Gastric varices [None]
  - Splenic vein thrombosis [None]
  - Acute myocardial infarction [Recovered/Resolved]
  - Coronary artery thrombosis [None]
